FAERS Safety Report 7880382-9 (Version None)
Quarter: 2011Q4

REPORT INFORMATION
  Report Type: 
  Country: None (occurrence: None)
  Receive Date: 20111101
  Receipt Date: 20111021
  Transmission Date: 20120403
  Serious: Yes (Disabling)
  Sender: FDA-Public Use
  Company Number: GB-TEVA-306079ISR

PATIENT
  Age: 29 Year
  Sex: Female
  Weight: 58 kg

DRUGS (1)
  1. TRIMETHOPRIM [Suspect]
     Dates: start: 20111012

REACTIONS (2)
  - HEADACHE [None]
  - NAUSEA [None]
